FAERS Safety Report 21735111 (Version 1)
Quarter: 2022Q4

REPORT INFORMATION
  Report Type: Spontaneous
  Country: US (occurrence: US)
  Receive Date: 20221215
  Receipt Date: 20221215
  Transmission Date: 20230112
  Serious: No
  Sender: FDA-Public Use
  Company Number: US-SA-SAC20221213000026

PATIENT
  Sex: Male

DRUGS (2)
  1. DUPIXENT [Suspect]
     Active Substance: DUPILUMAB
     Dosage: 300 MG; FREQUENCY: OTHER
     Route: 058
  2. SEYSARA [Suspect]
     Active Substance: SARECYCLINE HYDROCHLORIDE

REACTIONS (8)
  - Dysarthria [Unknown]
  - Photophobia [Unknown]
  - Eye disorder [Unknown]
  - Euphoric mood [Unknown]
  - Motor dysfunction [Unknown]
  - Head discomfort [Unknown]
  - Dyspepsia [Unknown]
  - Eye irritation [Unknown]
